FAERS Safety Report 6166312-9 (Version None)
Quarter: 2009Q2

REPORT INFORMATION
  Report Type: 
  Country: None (occurrence: None)
  Receive Date: 20090422
  Receipt Date: 20090422
  Transmission Date: 20091009
  Serious: Yes (Disabling)
  Sender: FDA-Public Use
  Company Number: None

PATIENT
  Sex: Female
  Weight: 83.9154 kg

DRUGS (1)
  1. LEVAQUIN [Suspect]
     Indication: CYSTITIS ESCHERICHIA
     Dosage: 1 X DAY 14 DAYS
     Dates: start: 20081209, end: 20081219

REACTIONS (3)
  - LIGAMENT DISORDER [None]
  - SWELLING [None]
  - TENDON DISORDER [None]
